FAERS Safety Report 24722124 (Version 1)
Quarter: 2024Q4

REPORT INFORMATION
  Report Type: Spontaneous
  Country: US (occurrence: US)
  Receive Date: 20241211
  Receipt Date: 20241211
  Transmission Date: 20250115
  Serious: No
  Sender: Otter
  Company Number: US-OTTER-US-2024AST000255

PATIENT
  Sex: Male

DRUGS (2)
  1. SYMPAZAN [Suspect]
     Active Substance: CLOBAZAM
     Indication: Seizure
     Dosage: 5 MILLIGRAM, TID
     Route: 048
  2. SYMPAZAN [Suspect]
     Active Substance: CLOBAZAM
     Dosage: 10 MILLIGRAM, QD
     Route: 048

REACTIONS (3)
  - Balance disorder [Unknown]
  - Speech disorder [Unknown]
  - Wrong technique in product usage process [Unknown]
